FAERS Safety Report 11456391 (Version 1)
Quarter: 2015Q3

REPORT INFORMATION
  Report Type: Spontaneous
  Country: US (occurrence: US)
  Receive Date: 20150903
  Receipt Date: 20150903
  Transmission Date: 20151125
  Serious: Yes (Other)
  Sender: FDA-Public Use
  Company Number: US-ELI_LILLY_AND_COMPANY-US201508008183

PATIENT
  Age: 80 Year
  Sex: Female

DRUGS (1)
  1. EFFIENT [Suspect]
     Active Substance: PRASUGREL HYDROCHLORIDE
     Indication: STENT PLACEMENT
     Dosage: 10 MG, UNKNOWN
     Route: 065
     Dates: start: 201508

REACTIONS (8)
  - Depression [Unknown]
  - Vessel puncture site haemorrhage [Unknown]
  - Malnutrition [Unknown]
  - Decreased appetite [Unknown]
  - Feeling abnormal [Unknown]
  - Contusion [Unknown]
  - Dizziness [Unknown]
  - Nausea [Unknown]
